FAERS Safety Report 23610218 (Version 3)
Quarter: 2024Q2

REPORT INFORMATION
  Report Type: Report from Study
  Country: US (occurrence: US)
  Receive Date: 20240308
  Receipt Date: 20240426
  Transmission Date: 20240715
  Serious: Yes (Other)
  Sender: FDA-Public Use
  Company Number: US-UCBSA-2024010745

PATIENT
  Sex: Female

DRUGS (22)
  1. ROZANOLIXIZUMAB [Suspect]
     Active Substance: ROZANOLIXIZUMAB
     Indication: Myasthenia gravis
     Dosage: 560 MILLIGRAM, WEEKLY (QW) (560MG (4ML) VIA SUBCUTANEOUS INFUSION ONCE WEEKLY FOR SIX WEEKS)
     Route: 058
     Dates: start: 20240212
  2. PROAMATINE [Concomitant]
     Active Substance: MIDODRINE HYDROCHLORIDE
     Indication: Product used for unknown indication
     Dosage: 10 MILLIGRAM, 3X/DAY (TID)
  3. MESTINON [Concomitant]
     Active Substance: PYRIDOSTIGMINE BROMIDE
     Indication: Product used for unknown indication
     Dosage: 120 MILLIGRAM, 3X/DAY (TID)
  4. IRON [Concomitant]
     Active Substance: IRON
     Indication: Product used for unknown indication
     Dosage: 325 MILLIGRAM, EV 2 WEEKS(QOW)MORNING
  5. LEXAPRO [Concomitant]
     Active Substance: ESCITALOPRAM OXALATE
     Indication: Product used for unknown indication
     Dosage: 5 MILLIGRAM, ONCE DAILY (QD) MORNING
  6. FLONASE ALLERGY RELIEF [Concomitant]
     Active Substance: FLUTICASONE PROPIONATE
     Indication: Product used for unknown indication
     Dosage: 27.5 MICROGRAM IN EACH NOSTRIL MORNING
  7. D-3 FEROL [Concomitant]
     Indication: Product used for unknown indication
     Dosage: 2:00 PM
  8. B 12 [Concomitant]
     Indication: Product used for unknown indication
     Dosage: 2:00 PM SUBLINGUAL VITAMIN
  9. ARICEPT [Concomitant]
     Active Substance: DONEPEZIL HYDROCHLORIDE
     Indication: Product used for unknown indication
     Dosage: 10 MILLIGRAM, ONCE DAILY (QD)EVENING BEFORE BED
  10. ZETIA [Concomitant]
     Active Substance: EZETIMIBE
     Indication: Blood cholesterol
     Dosage: 10 MILLIGRAM EVENING BEFORE BED
  11. MEMANTINE [Concomitant]
     Active Substance: MEMANTINE
     Indication: Product used for unknown indication
     Dosage: 28 MILLIGRAM EVENING BEFORE BED
  12. CRESTOR [Concomitant]
     Active Substance: ROSUVASTATIN CALCIUM
     Indication: Product used for unknown indication
     Dosage: 5 MILLIGRAM, EV 2 WEEKS(QOW)EVENING BEFORE BED
  13. TRAZODONE [Concomitant]
     Active Substance: TRAZODONE HYDROCHLORIDE
     Indication: Product used for unknown indication
     Dosage: 100 MILLIGRAM, ONCE DAILY (QD) AT BEDTIME
  14. SLEEP3 + STRESS SUPPORT [Concomitant]
     Indication: Product used for unknown indication
     Dosage: 10 MILLIGRAM EVENING BEFORE BED
  15. CANNABIDIOL\HERBALS [Concomitant]
     Active Substance: CANNABIDIOL\HERBALS
     Indication: Product used for unknown indication
     Dosage: 30 MILLIGRAM EVENING BEFORE BED
  16. CANNABIDIOL\HERBALS [Concomitant]
     Active Substance: CANNABIDIOL\HERBALS
     Dosage: 10 MILLIGRAM EVENING BEFORE BED
  17. PREBIOTICS NOS;PROBIOTICS NOS [Concomitant]
     Indication: Product used for unknown indication
     Dosage: EVENING BEFORE BED
  18. ALBUTEROL [Concomitant]
     Active Substance: ALBUTEROL
     Indication: Product used for unknown indication
     Dosage: 90 MICROGRAM PRN
  19. IPRATROPIUM [Concomitant]
     Active Substance: IPRATROPIUM
     Indication: Product used for unknown indication
     Dosage: 0.02 PERCENT NEBULIZED SOLUTION, 2.5 ML, 4 X DAY AS NEEDED
  20. TRAMADOL [Concomitant]
     Active Substance: TRAMADOL\TRAMADOL HYDROCHLORIDE
     Indication: Product used for unknown indication
     Dosage: 50 MILLIGRAM PRN
  21. ACETAMINOPHEN [Concomitant]
     Active Substance: ACETAMINOPHEN
     Indication: Product used for unknown indication
     Dosage: 500 MILLIGRAM PRN
  22. TRELEGY ELLIPTA [Concomitant]
     Active Substance: FLUTICASONE FUROATE\UMECLIDINIUM BROMIDE\VILANTEROL TRIFENATATE
     Indication: Product used for unknown indication
     Dosage: 100MCG/62.5 MCG/25MCG ONE PUFF A DAY

REACTIONS (8)
  - Myasthenia gravis crisis [Not Recovered/Not Resolved]
  - Rash pruritic [Recovered/Resolved]
  - Hypersomnia [Recovering/Resolving]
  - Confusional state [Unknown]
  - Headache [Unknown]
  - Dizziness [Unknown]
  - Asthenia [Unknown]
  - Gait inability [Recovering/Resolving]

NARRATIVE: CASE EVENT DATE: 20240101
